FAERS Safety Report 16415812 (Version 2)
Quarter: 2019Q3

REPORT INFORMATION
  Report Type: Spontaneous
  Country: US (occurrence: US)
  Receive Date: 20190611
  Receipt Date: 20190709
  Transmission Date: 20191004
  Serious: No
  Sender: FDA-Public Use
  Company Number: US-SA-2019SA156251

PATIENT
  Age: 40 Year
  Sex: Female
  Weight: 71 kg

DRUGS (3)
  1. DUPIXENT [Suspect]
     Active Substance: DUPILUMAB
     Indication: DERMATITIS ATOPIC
     Dosage: 300 MG, QOW
     Route: 058
     Dates: start: 201806
  2. ALLEGRA D-12 HOUR [Concomitant]
     Active Substance: FEXOFENADINE HYDROCHLORIDE\PSEUDOEPHEDRINE HYDROCHLORIDE
     Dosage: 1 DF, BID
     Route: 048
  3. DUPIXENT [Suspect]
     Active Substance: DUPILUMAB
     Indication: ECZEMA

REACTIONS (11)
  - Conjunctivitis [Recovered/Resolved]
  - Visual impairment [Recovering/Resolving]
  - Vision blurred [Unknown]
  - Pruritus [Not Recovered/Not Resolved]
  - Eye irritation [Recovering/Resolving]
  - Eye pruritus [Not Recovered/Not Resolved]
  - Ocular discomfort [Recovering/Resolving]
  - Conjunctivitis allergic [Unknown]
  - Sleep deficit [Unknown]
  - Ocular hyperaemia [Recovered/Resolved]
  - Eczema [Not Recovered/Not Resolved]

NARRATIVE: CASE EVENT DATE: 201903
